FAERS Safety Report 22053470 (Version 1)
Quarter: 2023Q1

REPORT INFORMATION
  Report Type: Spontaneous
  Country: US (occurrence: US)
  Receive Date: 20230302
  Receipt Date: 20230302
  Transmission Date: 20230417
  Serious: No
  Sender: FDA-Public Use
  Company Number: US-BAYER-2023A020038

PATIENT
  Age: 67 Year
  Sex: Male

DRUGS (2)
  1. CLARITIN [Suspect]
     Active Substance: LORATADINE
     Indication: Hypersensitivity
     Dosage: 1 DF
     Route: 048
  2. CLARITIN [Suspect]
     Active Substance: LORATADINE
     Indication: Nasopharyngitis

REACTIONS (5)
  - Agitation [Not Recovered/Not Resolved]
  - Headache [Recovering/Resolving]
  - Oral discomfort [Unknown]
  - Nervousness [Not Recovered/Not Resolved]
  - Product label issue [None]
